FAERS Safety Report 23438125 (Version 3)
Quarter: 2024Q2

REPORT INFORMATION
  Report Type: Spontaneous
  Country: GB (occurrence: GB)
  Receive Date: 20240124
  Receipt Date: 20240410
  Transmission Date: 20240715
  Serious: Yes (Hospitalization)
  Sender: FDA-Public Use
  Company Number: GB-MYLANLABS-2024M1002414

PATIENT
  Sex: Female

DRUGS (3)
  1. CLOZARIL [Suspect]
     Active Substance: CLOZAPINE
     Indication: Product used for unknown indication
     Dosage: UNK
     Route: 048
     Dates: start: 20210426, end: 20231230
  2. CLOZARIL [Suspect]
     Active Substance: CLOZAPINE
     Dosage: UNK
     Route: 048
     Dates: start: 20240103, end: 202401
  3. CLOZARIL [Suspect]
     Active Substance: CLOZAPINE
     Dosage: UNK
     Route: 048
     Dates: start: 20240126

REACTIONS (6)
  - Mental impairment [Unknown]
  - Malaise [Unknown]
  - Therapy interrupted [Recovered/Resolved]
  - Treatment noncompliance [Unknown]
  - Weight increased [Unknown]
  - Sedation [Unknown]

NARRATIVE: CASE EVENT DATE: 20240101
